FAERS Safety Report 8009436-3 (Version None)
Quarter: 2011Q4

REPORT INFORMATION
  Report Type: 
  Country: None (occurrence: None)
  Receive Date: 20111227
  Receipt Date: 20111226
  Transmission Date: 20120403
  Serious: Yes (Other)
  Sender: FDA-Public Use
  Company Number: BR-B.I. PHARMACEUTICALS,INC./RIDGEFIELD-2011-BR-01432BR

PATIENT
  Sex: Male

DRUGS (3)
  1. PRADAXA [Suspect]
     Indication: THROMBOSIS PROPHYLAXIS
     Dosage: 300 MG
     Route: 048
     Dates: start: 20111222, end: 20111222
  2. ASPIRIN [Concomitant]
     Indication: CEREBROVASCULAR ACCIDENT
  3. HEPARIN [Concomitant]
     Indication: CEREBROVASCULAR ACCIDENT

REACTIONS (2)
  - EMBOLIC STROKE [None]
  - CEREBRAL ISCHAEMIA [None]
